FAERS Safety Report 11258300 (Version 2)
Quarter: 2015Q3

REPORT INFORMATION
  Report Type: Spontaneous
  Country: IT (occurrence: IT)
  Receive Date: 20150710
  Receipt Date: 20150813
  Transmission Date: 20151125
  Serious: Yes (Other)
  Sender: FDA-Public Use
  Company Number: PHHY2015IT081270

PATIENT
  Age: 38 Year
  Sex: Female

DRUGS (5)
  1. LIORESAL [Concomitant]
     Active Substance: BACLOFEN
     Indication: PRODUCT USED FOR UNKNOWN INDICATION
     Dosage: 25 MG, FOR 37 MONTHS
     Route: 048
     Dates: start: 20120601
  2. GABAPENTIN TEVA [Concomitant]
     Active Substance: GABAPENTIN
     Indication: PRODUCT USED FOR UNKNOWN INDICATION
     Dosage: 600 MG, FOR 85 MONTHS
     Route: 048
     Dates: start: 20080601
  3. CIPRALEX [Concomitant]
     Active Substance: ESCITALOPRAM OXALATE
     Indication: DEPRESSION
     Dosage: 20 GTT, FOR 37 MONTHS
     Route: 048
     Dates: start: 20120601
  4. LYRICA [Concomitant]
     Active Substance: PREGABALIN
     Indication: NEURALGIA
     Dosage: 350 MG, FOR 85 MONTHS
     Route: 048
     Dates: start: 20080601
  5. GILENYA [Suspect]
     Active Substance: FINGOLIMOD HYDROCHLORIDE
     Indication: MULTIPLE SCLEROSIS
     Dosage: 0.5 MG, QD
     Route: 048
     Dates: start: 20141021, end: 20150507

REACTIONS (8)
  - Gastritis erosive [Recovering/Resolving]
  - Rectal haemorrhage [Recovered/Resolved]
  - Diarrhoea [Recovered/Resolved]
  - Decreased appetite [Recovered/Resolved]
  - Abdominal pain upper [Recovered/Resolved]
  - Gastric polyps [Recovering/Resolving]
  - Weight decreased [Recovered/Resolved]
  - Oesophageal disorder [Recovering/Resolving]

NARRATIVE: CASE EVENT DATE: 20141031
